FAERS Safety Report 10384164 (Version 1)
Quarter: 2014Q1

REPORT INFORMATION
  Report Type: Spontaneous
  Country: US (occurrence: None)
  Receive Date: 20140306
  Receipt Date: 20140306
  Transmission Date: 20141002
  Serious: Yes (Hospitalization)
  Sender: FDA-Public Use
  Company Number: 163-21880-13110095

PATIENT
  Age: 75 Year
  Sex: Male
  Weight: 101.11 kg

DRUGS (3)
  1. REVLIMID (LENALIDOMIDE) (25 MILLIGRAM, CAPSULES) [Suspect]
     Indication: PLASMA CELL MYELOMA
     Dosage: 2`1 IN 21 D, PO
     Route: 048
     Dates: start: 20100628, end: 20100913
  2. DEXAMETHASONE (DEXAMETHASONE) [Concomitant]
  3. ASA (ACETYLSALICYLIC ACID) [Concomitant]

REACTIONS (3)
  - Pneumonia [None]
  - Anxiety [None]
  - Dizziness [None]
